FAERS Safety Report 8309069-5 (Version None)
Quarter: 2012Q2

REPORT INFORMATION
  Report Type: 
  Country: None (occurrence: None)
  Receive Date: 20120424
  Receipt Date: 20120410
  Transmission Date: 20120825
  Serious: Yes (Other)
  Sender: FDA-Public Use
  Company Number: US-ROCHE-1058558

PATIENT
  Sex: Male
  Weight: 83.082 kg

DRUGS (3)
  1. ACTEMRA [Suspect]
     Route: 042
     Dates: start: 20120221
  2. ACTEMRA [Suspect]
     Indication: RHEUMATOID ARTHRITIS
     Dosage: 20 CC
     Route: 042
     Dates: start: 20120329
  3. ARAVA [Concomitant]

REACTIONS (1)
  - RESPIRATORY FAILURE [None]
